FAERS Safety Report 23403784 (Version 1)
Quarter: 2024Q1

REPORT INFORMATION
  Report Type: Spontaneous
  Country: US (occurrence: None)
  Receive Date: 20240116
  Receipt Date: 20240116
  Transmission Date: 20240410
  Serious: No
  Sender: FDA-Public Use
  Company Number: 2024A008041

PATIENT
  Sex: Male

DRUGS (1)
  1. BREZTRI [Suspect]
     Active Substance: BUDESONIDE\FORMOTEROL\GLYCOPYRROLATE
     Indication: Chronic obstructive pulmonary disease
     Route: 055
     Dates: start: 202305

REACTIONS (6)
  - Dyspnoea [Unknown]
  - Malaise [Unknown]
  - Gait inability [Unknown]
  - Visual impairment [Unknown]
  - Product use issue [Unknown]
  - Incorrect dose administered [Unknown]
